FAERS Safety Report 8078453-X (Version None)
Quarter: 2012Q1

REPORT INFORMATION
  Report Type: 
  Country: None (occurrence: None)
  Receive Date: 20120127
  Receipt Date: 20110227
  Transmission Date: 20120608
  Serious: Yes (Other)
  Sender: FDA-Public Use
  Company Number: PR-ABBOTT-11P-131-0705952-00

PATIENT
  Sex: Female
  Weight: 71.732 kg

DRUGS (6)
  1. METHOTREXATE [Concomitant]
     Indication: RHEUMATOID ARTHRITIS
     Route: 048
  2. HUMIRA [Suspect]
     Indication: RHEUMATOID ARTHRITIS
     Route: 058
     Dates: start: 20101108
  3. MEDROL [Concomitant]
     Indication: RHEUMATOID ARTHRITIS
  4. FOLIC ACID [Concomitant]
     Indication: RHEUMATOID ARTHRITIS
  5. FIORICET [Concomitant]
     Indication: MIGRAINE
     Route: 048
  6. DULCOLAX [Concomitant]
     Indication: CONSTIPATION
     Route: 048

REACTIONS (15)
  - PYREXIA [None]
  - INJECTION SITE WARMTH [None]
  - ASTHENIA [None]
  - INJECTION SITE HAEMATOMA [None]
  - EAR PAIN [None]
  - MALAISE [None]
  - INDURATION [None]
  - OROPHARYNGEAL PAIN [None]
  - MUSCLE SPASMS [None]
  - NECK PAIN [None]
  - INJECTION SITE PRURITUS [None]
  - CHEST PAIN [None]
  - INJECTION SITE REACTION [None]
  - INJECTION SITE INFLAMMATION [None]
  - HEADACHE [None]
